FAERS Safety Report 4711023-7 (Version None)
Quarter: 2005Q3

REPORT INFORMATION
  Report Type: 
  Country: None (occurrence: None)
  Receive Date: 20050708
  Receipt Date: 20050627
  Transmission Date: 20060218
  Serious: Yes (Other)
  Sender: FDA-Public Use
  Company Number: OMPQ-NO-0506S-0860

PATIENT
  Age: 72 Year
  Sex: Female
  Weight: 59 kg

DRUGS (4)
  1. OMNIPAQUE 300 [Suspect]
     Indication: LUNG CANCER METASTATIC
     Dosage: 100 ML, SINGLE DOSE, I.V.
     Route: 042
     Dates: start: 20050603, end: 20050603
  2. METHYLPREDNISOLONE SODIUM SUCCINATE (SOLU-MEDROL) [Concomitant]
  3. NORVASC [Concomitant]
  4. FAMOTIDINE (GASTER D) [Concomitant]

REACTIONS (2)
  - POST PROCEDURAL DISCOMFORT [None]
  - SHOCK [None]
